FAERS Safety Report 9366048 (Version 1)
Quarter: 2013Q2

REPORT INFORMATION
  Report Type: Spontaneous
  Country: FR (occurrence: FR)
  Receive Date: 20130625
  Receipt Date: 20130625
  Transmission Date: 20140414
  Serious: Yes (Hospitalization, Other)
  Sender: FDA-Public Use
  Company Number: FR-RANBAXY-2013RR-70450

PATIENT
  Age: 56 Year
  Sex: Male
  Weight: 60 kg

DRUGS (2)
  1. AMOXICILLINE [Suspect]
     Indication: TOOTH ABSCESS
     Dosage: 1 G, TID
     Route: 048
     Dates: start: 201211, end: 20121117
  2. METRONIDAZOLE [Suspect]
     Indication: TOOTH ABSCESS
     Dosage: 500 MG, TID
     Route: 048
     Dates: start: 20121111

REACTIONS (2)
  - Drug hypersensitivity [Recovered/Resolved]
  - Toxic skin eruption [Recovered/Resolved]
